FAERS Safety Report 12568945 (Version 1)
Quarter: 2016Q3

REPORT INFORMATION
  Report Type: Spontaneous
  Country: BR (occurrence: BR)
  Receive Date: 20160719
  Receipt Date: 20160719
  Transmission Date: 20161109
  Serious: Yes (Other)
  Sender: FDA-Public Use
  Company Number: BR-ASTRAZENECA-2016SE75646

PATIENT
  Sex: Male

DRUGS (1)
  1. SELOZOK [Suspect]
     Active Substance: METOPROLOL SUCCINATE
     Indication: STENT PLACEMENT
     Route: 048
     Dates: start: 2015

REACTIONS (3)
  - Drug ineffective [Recovered/Resolved]
  - Off label use [Not Recovered/Not Resolved]
  - Blood pressure increased [Recovered/Resolved]

NARRATIVE: CASE EVENT DATE: 2015
